FAERS Safety Report 5811944-8 (Version None)
Quarter: 2008Q3

REPORT INFORMATION
  Report Type: 
  Country: None (occurrence: None)
  Receive Date: 20080716
  Receipt Date: 20080707
  Transmission Date: 20090109
  Serious: No
  Sender: FDA-Public Use
  Company Number: GB-ELI_LILLY_AND_COMPANY-GB200804006495

PATIENT
  Sex: Male

DRUGS (7)
  1. CYMBALTA [Suspect]
     Indication: DEPRESSION
     Dosage: 60 MG, UNK
     Route: 048
     Dates: start: 20080301
  2. ASPIRIN [Concomitant]
     Indication: MYOCARDIAL ISCHAEMIA
     Dosage: 75 MG, UNK
     Route: 048
  3. OMEPRAZOLE [Concomitant]
     Dosage: 20 MG, UNK
     Route: 048
  4. ASACOL [Concomitant]
     Dosage: 400 MG, UNK
     Route: 048
  5. INDAPAMIDE [Concomitant]
     Dosage: 1.5 MG, UNK
     Route: 048
  6. BISOPROLOL FUMARATE [Concomitant]
     Dosage: 2.5 MG, UNK
     Route: 048
  7. VALSARTAN [Concomitant]
     Dosage: 120 MG, DAILY (1/D)
     Route: 048

REACTIONS (2)
  - BLISTER [None]
  - INSOMNIA [None]
